FAERS Safety Report 14193216 (Version 1)
Quarter: 2017Q4

REPORT INFORMATION
  Report Type: Spontaneous
  Country: US (occurrence: US)
  Receive Date: 20171115
  Receipt Date: 20171115
  Transmission Date: 20180321
  Serious: Yes (Death, Hospitalization, Other)
  Sender: FDA-Public Use
  Company Number: US-ABBVIE-17P-163-2163822-00

PATIENT
  Sex: Male

DRUGS (1)
  1. VENCLEXTA [Suspect]
     Active Substance: VENETOCLAX
     Indication: MANTLE CELL LYMPHOMA
     Route: 048

REACTIONS (5)
  - Cardiac arrest [Fatal]
  - Tumour lysis syndrome [Fatal]
  - Renal failure [Unknown]
  - Pulmonary oedema [Unknown]
  - Arrhythmia [Fatal]
